FAERS Safety Report 6643979-X (Version None)
Quarter: 2010Q1

REPORT INFORMATION
  Report Type: 
  Country: None (occurrence: None)
  Receive Date: 20100318
  Receipt Date: 20100318
  Transmission Date: 20100710
  Serious: Yes (Death)
  Sender: FDA-Public Use
  Company Number: None

PATIENT
  Age: 67 Year
  Sex: Male
  Weight: 127.0072 kg

DRUGS (1)
  1. TORSEMIDE [Suspect]
     Indication: FLUID RETENTION
     Dosage: 1 TABLET EVERY DAY MOUTH
     Route: 048
     Dates: start: 20100306

REACTIONS (1)
  - DEATH [None]
